FAERS Safety Report 25100907 (Version 2)
Quarter: 2025Q2

REPORT INFORMATION
  Report Type: Report from Study
  Country: CN (occurrence: CN)
  Receive Date: 20250320
  Receipt Date: 20250421
  Transmission Date: 20250716
  Serious: Yes (Death, Hospitalization)
  Sender: EISAI
  Company Number: CN-Eisai-EC-2025-186069

PATIENT
  Age: 58 Year
  Sex: Female
  Weight: 47.5 kg

DRUGS (16)
  1. ERIBULIN [Suspect]
     Active Substance: ERIBULIN
     Indication: HER2 positive breast cancer
     Dates: start: 20241118, end: 20241230
  2. ERIBULIN [Suspect]
     Active Substance: ERIBULIN
     Dates: start: 20250116, end: 20250116
  3. ERIBULIN [Suspect]
     Active Substance: ERIBULIN
     Dates: start: 20250210, end: 20250217
  4. CAPECITABINE [Suspect]
     Active Substance: CAPECITABINE
     Indication: HER2 positive breast cancer
     Dates: start: 20241118, end: 20241129
  5. CAPECITABINE [Suspect]
     Active Substance: CAPECITABINE
     Dates: start: 20241209, end: 20241222
  6. CAPECITABINE [Suspect]
     Active Substance: CAPECITABINE
     Dates: start: 20241230, end: 20250104
  7. CAPECITABINE [Suspect]
     Active Substance: CAPECITABINE
     Dates: start: 20250116, end: 20250129
  8. CAPECITABINE [Suspect]
     Active Substance: CAPECITABINE
     Dates: start: 20250210
  9. OMEPRAZOLE [Concomitant]
     Active Substance: OMEPRAZOLE
     Indication: Gastrointestinal pain
     Dates: start: 20241107
  10. OXYCODONE AND ACETAMINOPHEN [Concomitant]
     Active Substance: ACETAMINOPHEN\OXYCODONE HYDROCHLORIDE
     Indication: Back pain
     Dates: start: 2024
  11. OXYCODONE AND ACETAMINOPHEN [Concomitant]
     Active Substance: ACETAMINOPHEN\OXYCODONE HYDROCHLORIDE
     Indication: Arthralgia
  12. NIFEDIPINE [Concomitant]
     Active Substance: NIFEDIPINE
     Indication: Hypertension
     Dates: start: 2012
  13. ENEMA GLYCERIN [Concomitant]
     Indication: Constipation
  14. HERBALS\DIAMMONIUM GLYCYRRHIZINATE [Concomitant]
     Active Substance: HERBALS\DIAMMONIUM GLYCYRRHIZINATE
     Indication: Prophylaxis
     Dates: start: 20241125
  15. ESTAZOLAM [Concomitant]
     Active Substance: ESTAZOLAM
     Indication: Insomnia
     Dates: start: 20250116
  16. FERRIC POLYSACCHARIDE COMPLEX [Concomitant]
     Active Substance: FERRIC POLYSACCHARIDE COMPLEX
     Indication: Anaemia
     Dates: start: 20250104

REACTIONS (1)
  - Intestinal obstruction [Fatal]

NARRATIVE: CASE EVENT DATE: 20250226
